FAERS Safety Report 5472902-9 (Version None)
Quarter: 2007Q4

REPORT INFORMATION
  Report Type: 
  Country: None (occurrence: None)
  Receive Date: 20071001
  Receipt Date: 20070928
  Transmission Date: 20080405
  Serious: Yes (Hospitalization)
  Sender: FDA-Public Use
  Company Number: B0483913A

PATIENT
  Age: 12 Year
  Sex: Male

DRUGS (3)
  1. CEFUROXIME [Suspect]
     Indication: BRONCHITIS
     Dosage: 1G TWICE PER DAY
     Route: 048
     Dates: start: 20070628, end: 20070705
  2. SERETIDE [Concomitant]
     Indication: BRONCHITIS
     Route: 065
     Dates: start: 20070703
  3. BRONCHOKOD [Concomitant]
     Indication: BRONCHITIS
     Route: 065
     Dates: start: 20070730

REACTIONS (14)
  - CONJUNCTIVITIS [None]
  - DRUG INEFFECTIVE [None]
  - ERYTHEMA MULTIFORME [None]
  - LIP DISCOLOURATION [None]
  - LIP DISORDER [None]
  - LIP SWELLING [None]
  - LIP ULCERATION [None]
  - MOUTH ULCERATION [None]
  - PARAESTHESIA ORAL [None]
  - PNEUMONIA MYCOPLASMAL [None]
  - SKIN DISORDER [None]
  - SKIN LESION [None]
  - STOMATITIS [None]
  - STOMATITIS NECROTISING [None]
